FAERS Safety Report 8224363-4 (Version None)
Quarter: 2012Q1

REPORT INFORMATION
  Report Type: 
  Country: None (occurrence: None)
  Receive Date: 20120319
  Receipt Date: 20120308
  Transmission Date: 20120608
  Serious: Yes (Other)
  Sender: FDA-Public Use
  Company Number: 2012P1008983

PATIENT
  Age: 14 Year
  Sex: Male
  Weight: 103.4201 kg

DRUGS (13)
  1. FLORINEF [Concomitant]
  2. MELATONIN [Concomitant]
  3. PRILOSEC [Concomitant]
  4. BETAXOLOL HCL [Suspect]
     Indication: POSTURAL ORTHOSTATIC TACHYCARDIA SYNDROME
     Dosage: 5 MG;QD ; 2.5 MG;HS ; 5 MG;BID ; 5 MG;QD ; 2.5 MG;QD
     Dates: start: 20120209
  5. BETAXOLOL HCL [Suspect]
     Indication: POSTURAL ORTHOSTATIC TACHYCARDIA SYNDROME
     Dosage: 5 MG;QD ; 2.5 MG;HS ; 5 MG;BID ; 5 MG;QD ; 2.5 MG;QD
     Dates: start: 20110101, end: 20111201
  6. BETAXOLOL HCL [Suspect]
     Indication: POSTURAL ORTHOSTATIC TACHYCARDIA SYNDROME
     Dosage: 5 MG;QD ; 2.5 MG;HS ; 5 MG;BID ; 5 MG;QD ; 2.5 MG;QD
     Dates: start: 20110101, end: 20111201
  7. BETAXOLOL HCL [Suspect]
     Indication: POSTURAL ORTHOSTATIC TACHYCARDIA SYNDROME
     Dosage: 5 MG;QD ; 2.5 MG;HS ; 5 MG;BID ; 5 MG;QD ; 2.5 MG;QD
     Dates: start: 20111201, end: 20120208
  8. BETAXOLOL HCL [Suspect]
     Indication: POSTURAL ORTHOSTATIC TACHYCARDIA SYNDROME
     Dosage: 5 MG;QD ; 2.5 MG;HS ; 5 MG;BID ; 5 MG;QD ; 2.5 MG;QD
     Dates: start: 20120209
  9. CLARITIN [Concomitant]
  10. ADDERALL ER [Concomitant]
  11. COLACE [Concomitant]
  12. MIDODRINE HYDROCHLORIDE [Concomitant]
  13. FISH OIL [Concomitant]

REACTIONS (11)
  - DYSPNOEA [None]
  - INCORRECT STORAGE OF DRUG [None]
  - TABLET PHYSICAL ISSUE [None]
  - DIZZINESS [None]
  - HEART RATE INCREASED [None]
  - BLOOD PRESSURE DECREASED [None]
  - PRODUCT QUALITY ISSUE [None]
  - ABDOMINAL DISCOMFORT [None]
  - DRUG INEFFECTIVE [None]
  - ABNORMAL LOSS OF WEIGHT [None]
  - NAUSEA [None]
